FAERS Safety Report 4983405-X (Version None)
Quarter: 2006Q2

REPORT INFORMATION
  Report Type: 
  Country: None (occurrence: None)
  Receive Date: 20060426
  Receipt Date: 20050414
  Transmission Date: 20061013
  Serious: Yes (Hospitalization, Disabling, Other)
  Sender: FDA-Public Use
  Company Number: US-MERCK-0504USA02471

PATIENT
  Age: 46 Year
  Sex: Male
  Weight: 97 kg

DRUGS (3)
  1. VIOXX [Suspect]
     Indication: BACK PAIN
     Route: 048
     Dates: start: 20030317, end: 20040301
  2. VIOXX [Suspect]
     Route: 048
     Dates: start: 20030317, end: 20040301
  3. VIOXX [Suspect]
     Route: 048
     Dates: start: 20030317, end: 20040301

REACTIONS (4)
  - CEREBROVASCULAR ACCIDENT [None]
  - CONVULSION [None]
  - GASTROINTESTINAL HAEMORRHAGE [None]
  - PRESCRIBED OVERDOSE [None]
